FAERS Safety Report 9227425 (Version 1)
Quarter: 2013Q2

REPORT INFORMATION
  Report Type: Spontaneous
  Country: US (occurrence: None)
  Receive Date: 20130411
  Receipt Date: 20130411
  Transmission Date: 20140414
  Serious: Yes (Hospitalization)
  Sender: FDA-Public Use
  Company Number: None

PATIENT
  Age: 59 Year
  Sex: Male
  Weight: 81 kg

DRUGS (10)
  1. DILAUDID [Suspect]
     Dosage: 4MG TABS 1-2   Q4HR PRN  PO?RECENT
     Route: 048
  2. GABAPENTIN [Suspect]
     Dosage: 300MG  BID  PO?RECENT
     Route: 048
  3. PHENERGAN [Suspect]
     Dosage: 25MG  PO  BID  PRN?RECENT
     Route: 048
  4. PLAVIX [Concomitant]
  5. CRESTOR [Concomitant]
  6. TOPROL XL [Concomitant]
  7. ZETIA [Concomitant]
  8. ALLOPURINOL [Concomitant]
  9. CARDIZEM CD [Concomitant]
  10. VIT C [Concomitant]

REACTIONS (6)
  - Unresponsive to stimuli [None]
  - Hypoxia [None]
  - Electrocardiogram ST segment depression [None]
  - Troponin increased [None]
  - Pneumonia aspiration [None]
  - Renal failure acute [None]
